FAERS Safety Report 10145617 (Version 1)
Quarter: 2014Q2

REPORT INFORMATION
  Report Type: Spontaneous
  Country: FR (occurrence: FR)
  Receive Date: 20140501
  Receipt Date: 20140501
  Transmission Date: 20141212
  Serious: Yes (Hospitalization)
  Sender: FDA-Public Use
  Company Number: FR-ROCHE-1389105

PATIENT
  Age: 72 Year
  Sex: Male

DRUGS (3)
  1. ROFERON-A [Suspect]
     Indication: MYCOSIS FUNGOIDES
     Dosage: DOSE 3 MIU THREE TIMES/WEEK
     Route: 058
     Dates: start: 20140113, end: 20140205
  2. GEMCITABINE [Suspect]
     Indication: MYCOSIS FUNGOIDES
     Dosage: DOSE= 500MG/M2 PER WEEK 3 WEEKS/4; 7TH COURSE
     Route: 042
     Dates: start: 20140131
  3. PARACETAMOL [Concomitant]

REACTIONS (2)
  - Oedema peripheral [Recovered/Resolved]
  - Thrombocytopenia [Recovered/Resolved]
